FAERS Safety Report 16562078 (Version 1)
Quarter: 2019Q3

REPORT INFORMATION
  Report Type: Spontaneous
  Country: GB (occurrence: GB)
  Receive Date: 20190711
  Receipt Date: 20190711
  Transmission Date: 20191004
  Serious: Yes (Other)
  Sender: FDA-Public Use
  Company Number: GB-TEVA-2019-GB-1075186

PATIENT
  Age: 44 Year
  Sex: Female
  Weight: 62 kg

DRUGS (11)
  1. NITROFURANTOIN. [Suspect]
     Active Substance: NITROFURANTOIN
     Dosage: 200MG
     Dates: start: 20190424
  2. ANUSOL NOS [Concomitant]
     Active Substance: BALSAM PERU\BENZYL BENZOATE\BISMUTH HYDROXIDE\BISMUTH SUBGALLATE\HYDROCORTISONE ACETATE\ZINC OXIDE
     Dates: start: 20190425
  3. TRIMETHOPRIM. [Concomitant]
     Active Substance: TRIMETHOPRIM
     Dosage: 2 DOSAGE FORMS
     Dates: start: 20190425
  4. CLOTRIMAZOLE. [Concomitant]
     Active Substance: CLOTRIMAZOLE
     Dosage: USE AS DIRECTED
     Dates: start: 20190320, end: 20190321
  5. AMITRIPTYLINE HYDROCHLORIDE. [Concomitant]
     Active Substance: AMITRIPTYLINE HYDROCHLORIDE
     Dosage: 1 DOSAGE FORMS, NIGHT.
     Dates: start: 20190312, end: 20190409
  6. CAPSAICIN. [Concomitant]
     Active Substance: CAPSAICIN
     Dosage: APPLY 3-4 TIMES/DAY
     Dates: start: 20190312, end: 20190322
  7. COLECALCIFEROL [Concomitant]
     Active Substance: CHOLECALCIFEROL
     Dosage: 2000 UNITS IN WINTER, 1000 UNITS IN SUMMER
     Dates: start: 20190227
  8. FERROUS SULFATE. [Concomitant]
     Active Substance: FERROUS SULFATE
     Dosage: 1 DOSAGE FORMS
     Dates: start: 20150824
  9. FLUCLOXACILLIN [Concomitant]
     Active Substance: FLUCLOXACILLIN
     Dosage: 4 DOSAGE FORMS
     Dates: start: 20190206, end: 20190213
  10. ADCAL [Concomitant]
     Dosage: 4 DOSAGE FORMS
     Dates: start: 20180511, end: 20190227
  11. LANSOPRAZOLE. [Concomitant]
     Active Substance: LANSOPRAZOLE
     Dosage: 1 DOSAGE FORMS
     Dates: start: 20170724

REACTIONS (2)
  - Oral mucosal blistering [Recovered/Resolved]
  - Tongue blistering [Unknown]

NARRATIVE: CASE EVENT DATE: 20190425
